FAERS Safety Report 20900767 (Version 1)
Quarter: 2022Q2

REPORT INFORMATION
  Report Type: Spontaneous
  Country: CN (occurrence: None)
  Receive Date: 20220601
  Receipt Date: 20220601
  Transmission Date: 20220721
  Serious: Yes (Other)
  Sender: FDA-Public Use
  Company Number: 2022A199519

PATIENT
  Age: 20424 Day
  Sex: Male

DRUGS (2)
  1. TICAGRELOR [Suspect]
     Active Substance: TICAGRELOR
     Indication: Acute myocardial infarction
     Route: 048
     Dates: start: 20220506, end: 20220509
  2. TICAGRELOR [Suspect]
     Active Substance: TICAGRELOR
     Indication: Antiplatelet therapy
     Route: 048
     Dates: start: 20220506, end: 20220509

REACTIONS (4)
  - Asphyxia [Unknown]
  - Coronary artery stenosis [Unknown]
  - Chest discomfort [Unknown]
  - Troponin I increased [Unknown]

NARRATIVE: CASE EVENT DATE: 20220506
